FAERS Safety Report 13184359 (Version 2)
Quarter: 2017Q2

REPORT INFORMATION
  Report Type: Spontaneous
  Country: FR (occurrence: FR)
  Receive Date: 20170203
  Receipt Date: 20170406
  Transmission Date: 20170830
  Serious: Yes (Death)
  Sender: FDA-Public Use
  Company Number: FR-ROCHE-1888727

PATIENT
  Age: 81 Year
  Sex: Female

DRUGS (6)
  1. TARDYFERON (FRANCE) [Concomitant]
     Active Substance: FERROUS SULFATE\GASTRIC MUCIN
     Route: 048
  2. LEVOTHYROX [Concomitant]
     Active Substance: LEVOTHYROXINE
     Route: 048
  3. FUROSEMIDE. [Concomitant]
     Active Substance: FUROSEMIDE
     Route: 048
  4. DEPAMIDE [Concomitant]
     Active Substance: VALPROMIDE
     Route: 048
  5. XELODA [Suspect]
     Active Substance: CAPECITABINE
     Indication: ADENOCARCINOMA OF COLON
     Dosage: 1800 MG/DAY FOR 14 DAYS THEN 7 PAUSE DAYS.
     Route: 048
     Dates: start: 20161124, end: 20161224
  6. LERCANIDIPINE [Concomitant]
     Active Substance: LERCANIDIPINE
     Route: 048

REACTIONS (1)
  - Peripheral ischaemia [Fatal]

NARRATIVE: CASE EVENT DATE: 20161224
